FAERS Safety Report 6071792-3 (Version None)
Quarter: 2009Q1

REPORT INFORMATION
  Report Type: 
  Country: None (occurrence: None)
  Receive Date: 20090210
  Receipt Date: 20090130
  Transmission Date: 20090719
  Serious: Yes (Hospitalization, Other)
  Sender: FDA-Public Use
  Company Number: PHBS2007JP13221

PATIENT
  Sex: Male

DRUGS (10)
  1. COMTAN [Suspect]
     Indication: DRUG EFFECT DECREASED
     Dosage: 100 MG, TID
     Route: 048
     Dates: start: 20070719
  2. COMTAN [Suspect]
     Indication: PARKINSON'S DISEASE
     Dosage: 600 MG/DAY
     Route: 048
     Dates: end: 20090122
  3. CARBIDOPA + LEVODOPA [Suspect]
     Indication: PARKINSON'S DISEASE
     Dosage: 100 MG, 5QD
     Route: 048
     Dates: start: 20070414
  4. SELEGILINE HCL [Suspect]
     Indication: PARKINSON'S DISEASE
     Dosage: 2.5 MG, TID
     Route: 048
     Dates: start: 20070614
  5. RIVOTRIL [Suspect]
     Indication: PARKINSON'S DISEASE
     Dosage: 2 MG, TID
     Route: 048
     Dates: start: 20070414
  6. REQUIP [Suspect]
     Indication: PARKINSON'S DISEASE
     Dosage: 2 MG, TID
     Route: 048
     Dates: start: 20070414
  7. ARTANE [Suspect]
     Indication: PARKINSON'S DISEASE
     Dosage: 2 MG, TID
     Route: 048
     Dates: start: 20070414
  8. TERNELIN [Concomitant]
     Indication: PARKINSON'S DISEASE
     Dosage: 3 MG/D
     Route: 048
     Dates: start: 20070414
  9. MILMAG [Concomitant]
     Indication: CONSTIPATION
     Dosage: 1050 MG/D
     Route: 048
     Dates: start: 20070414
  10. MADOPAR [Concomitant]
     Dosage: UNK

REACTIONS (6)
  - ABNORMAL BEHAVIOUR [None]
  - HALLUCINATION [None]
  - HALLUCINATION, VISUAL [None]
  - INCOHERENT [None]
  - MENTAL IMPAIRMENT [None]
  - PSYCHIATRIC SYMPTOM [None]
